FAERS Safety Report 7327852-X (Version None)
Quarter: 2011Q1

REPORT INFORMATION
  Report Type: 
  Country: None (occurrence: None)
  Receive Date: 20110303
  Receipt Date: 20110228
  Transmission Date: 20110831
  Serious: No
  Sender: FDA-Public Use
  Company Number: US-PFIZER INC-2011044015

PATIENT
  Sex: Male
  Weight: 99.773 kg

DRUGS (1)
  1. ADVIL CONGESTION RELIEF [Suspect]
     Indication: NASAL CONGESTION
     Dosage: 200/10
     Route: 048
     Dates: start: 20110220

REACTIONS (1)
  - DRUG INEFFECTIVE [None]
